FAERS Safety Report 4660517-1 (Version None)
Quarter: 2005Q2

REPORT INFORMATION
  Report Type: 
  Country: None (occurrence: None)
  Receive Date: 20050427
  Receipt Date: 20050225
  Transmission Date: 20051028
  Serious: No
  Sender: FDA-Public Use
  Company Number: 212732

PATIENT
  Age: 56 Year
  Sex: Female
  Weight: 106 kg

DRUGS (9)
  1. XOLAIR [Suspect]
     Indication: ASTHMA
     Dosage: 150 MG, UNKNOWN, SUBCUTANEOUS
     Route: 058
     Dates: start: 20050211, end: 20050211
  2. ADVAIR (SALMETEROL XINAFOATE, FLUTICASONE PROPIONATE) [Concomitant]
  3. ZYRTEC [Concomitant]
  4. SINGULAIR [Concomitant]
  5. HYDROXYZINE [Concomitant]
  6. CRESTOR [Concomitant]
  7. ALBUTEROL (ALBUTEROL, ALBUTEROL SULFATE) [Concomitant]
  8. TRIAMICINOLONE (TRIAMCINOLONE) [Concomitant]
  9. PRIMIDONE [Concomitant]

REACTIONS (2)
  - DYSPNOEA [None]
  - URTICARIA [None]
